FAERS Safety Report 18168846 (Version 10)
Quarter: 2022Q4

REPORT INFORMATION
  Report Type: Spontaneous
  Country: US (occurrence: US)
  Receive Date: 20200819
  Receipt Date: 20221122
  Transmission Date: 20230113
  Serious: Yes (Other)
  Sender: FDA-Public Use
  Company Number: US-PFIZER INC-2020317425

PATIENT
  Age: 68 Year
  Sex: Female
  Weight: 63.5 kg

DRUGS (1)
  1. XELJANZ XR [Suspect]
     Active Substance: TOFACITINIB CITRATE
     Indication: Arthritis
     Dosage: 11 MG, 1X/DAY
     Dates: start: 2020

REACTIONS (11)
  - Cataract [Unknown]
  - Astigmatism [Unknown]
  - Neoplasm malignant [Unknown]
  - Haemorrhage [Unknown]
  - Pain [Unknown]
  - Psoriasis [Unknown]
  - Gait inability [Unknown]
  - Feeling abnormal [Unknown]
  - Illness [Unknown]
  - Bedridden [Unknown]
  - Rash [Unknown]
